FAERS Safety Report 8132529-7 (Version None)
Quarter: 2012Q1

REPORT INFORMATION
  Report Type: 
  Country: None (occurrence: None)
  Receive Date: 20120213
  Receipt Date: 20120207
  Transmission Date: 20120608
  Serious: Yes (Other)
  Sender: FDA-Public Use
  Company Number: JP-ALEXION-A201200217

PATIENT
  Age: 70 Year
  Sex: Male

DRUGS (2)
  1. SOLIRIS [Suspect]
     Indication: PAROXYSMAL NOCTURNAL HAEMOGLOBINURIA
     Dosage: 600 MG, QW
     Route: 042
     Dates: start: 20120110, end: 20120117
  2. PREDNISOLONE [Suspect]
     Dosage: 20 MG, UNK

REACTIONS (4)
  - APLASTIC ANAEMIA [None]
  - CONDITION AGGRAVATED [None]
  - PAROXYSMAL NOCTURNAL HAEMOGLOBINURIA [None]
  - INFECTION [None]
